FAERS Safety Report 19741883 (Version 1)
Quarter: 2021Q3

REPORT INFORMATION
  Report Type: Report from Study
  Country: ZA (occurrence: ZA)
  Receive Date: 20210824
  Receipt Date: 20210824
  Transmission Date: 20211014
  Serious: Yes (Death)
  Sender: FDA-Public Use
  Company Number: ZA-ASTRAZENECA-2021A691241

PATIENT
  Age: 71 Year
  Sex: Female

DRUGS (3)
  1. SYMBICORD TURBUHALER [Suspect]
     Active Substance: BUDESONIDE\FORMOTEROL FUMARATE DIHYDRATE
     Indication: ASTHMA
     Dosage: 160 UG/INHAL TWO TIMES A DAY
     Route: 055
  2. ASTHAVENT ECO [Concomitant]
     Active Substance: ALBUTEROL
     Indication: ASTHMA
     Dosage: 100.0UG/INHAL AS REQUIRED
     Route: 055
  3. ASPEN WARFARIN [Concomitant]
     Active Substance: WARFARIN
     Indication: ILL-DEFINED DISORDER
     Route: 048

REACTIONS (1)
  - Death [Fatal]

NARRATIVE: CASE EVENT DATE: 20210620
